FAERS Safety Report 23717051 (Version 2)
Quarter: 2024Q4

REPORT INFORMATION
  Report Type: Report from Study
  Country: US (occurrence: US)
  Receive Date: 20240408
  Receipt Date: 20241009
  Transmission Date: 20250114
  Serious: Yes (Other)
  Sender: ABBVIE
  Company Number: US-ABBVIE-5709512

PATIENT
  Age: 65 Year
  Sex: Male

DRUGS (2)
  1. SKYRIZI [Suspect]
     Active Substance: RISANKIZUMAB-RZAA
     Indication: Crohn^s disease
     Route: 058
     Dates: start: 20230426
  2. SKYRIZI [Suspect]
     Active Substance: RISANKIZUMAB-RZAA
     Dosage: LAST ADMIN DATE: 2023
     Route: 058
     Dates: start: 20230401

REACTIONS (5)
  - Abdominal hernia [Recovered/Resolved]
  - Gastrointestinal scarring [Recovered/Resolved]
  - Diverticulitis [Recovered/Resolved]
  - Constipation [Recovered/Resolved]
  - Umbilical hernia [Unknown]

NARRATIVE: CASE EVENT DATE: 20240322
